FAERS Safety Report 9335041 (Version 1)
Quarter: 2013Q2

REPORT INFORMATION
  Report Type: Spontaneous
  Country: TN (occurrence: TN)
  Receive Date: 20130606
  Receipt Date: 20130606
  Transmission Date: 20140414
  Serious: Yes (Hospitalization)
  Sender: FDA-Public Use
  Company Number: TN-MYLANLABS-2013S1011511

PATIENT
  Sex: Female

DRUGS (3)
  1. PREDNISONE [Suspect]
     Indication: IMMUNOSUPPRESSION
     Route: 065
  2. AZATHIOPRINE [Suspect]
     Indication: IMMUNOSUPPRESSION
     Route: 065
  3. TACROLIMUS [Suspect]
     Indication: IMMUNOSUPPRESSION
     Route: 065

REACTIONS (2)
  - Cutaneous leishmaniasis [Recovered/Resolved]
  - Blood creatinine increased [Recovered/Resolved]
